FAERS Safety Report 6634756-4 (Version None)
Quarter: 2010Q1

REPORT INFORMATION
  Report Type: 
  Country: None (occurrence: None)
  Receive Date: 20100225
  Receipt Date: 20090710
  Transmission Date: 20100710
  Serious: No
  Sender: FDA-Public Use
  Company Number: 2009-00599

PATIENT
  Age: 74 Year
  Sex: Female
  Weight: 77.1115 kg

DRUGS (10)
  1. ZICAM COLD REMEDY GEL SWABS [Suspect]
     Dosage: FOR COLDS, 2-3 YRS AGO
  2. ZICAM COLD REMEDY ORAL MIST [Suspect]
     Dosage: FOR COLDS, 2-3 YRS AGO
  3. ZICAM COUGH MAX COUGH SPRAY [Suspect]
     Dosage: FOR COLDS - 2-3 YRS AGO
  4. METFORMIN HCL [Concomitant]
  5. GLUCOPHAGE [Concomitant]
  6. CRESTOR [Concomitant]
  7. LOVAZA [Concomitant]
  8. TOPROL-XL [Concomitant]
  9. RYTHMOL [Concomitant]
  10. COUMADIN [Concomitant]

REACTIONS (1)
  - ANOSMIA [None]
